FAERS Safety Report 14830891 (Version 3)
Quarter: 2018Q3

REPORT INFORMATION
  Report Type: Spontaneous
  Country: US (occurrence: US)
  Receive Date: 20180430
  Receipt Date: 20180724
  Transmission Date: 20181010
  Serious: No
  Sender: FDA-Public Use
  Company Number: US-SA-2018SA119912

PATIENT
  Sex: Female

DRUGS (4)
  1. PRALUENT [Suspect]
     Active Substance: ALIROCUMAB
     Dosage: UNK UNK,UNK
     Route: 058
     Dates: start: 201711
  2. ALIROCUMAB PREFILLED PEN [Suspect]
     Active Substance: ALIROCUMAB
     Dosage: UNK
     Route: 058
     Dates: start: 20180611, end: 20180711
  3. PRALUENT [Suspect]
     Active Substance: ALIROCUMAB
     Dosage: UNK
     Route: 058
     Dates: start: 20180611, end: 20180711
  4. ALIROCUMAB PREFILLED PEN [Suspect]
     Active Substance: ALIROCUMAB
     Dosage: UNK
     Route: 058
     Dates: start: 201711

REACTIONS (5)
  - Myalgia [Unknown]
  - Nasopharyngitis [Unknown]
  - Hepatic enzyme increased [Unknown]
  - Drug dose omission [Unknown]
  - Alopecia [Unknown]
